FAERS Safety Report 19918822 (Version 3)
Quarter: 2022Q1

REPORT INFORMATION
  Report Type: Spontaneous
  Country: HR (occurrence: HR)
  Receive Date: 20211004
  Receipt Date: 20220112
  Transmission Date: 20220423
  Serious: Yes (Death, Other)
  Sender: FDA-Public Use
  Company Number: HR-JNJFOC-20210953573

PATIENT
  Age: 68 Year
  Sex: Female

DRUGS (3)
  1. IMBRUVICA [Suspect]
     Active Substance: IBRUTINIB
     Indication: Chronic lymphocytic leukaemia
     Route: 048
     Dates: start: 20201116, end: 20210316
  2. IMBRUVICA [Suspect]
     Active Substance: IBRUTINIB
     Route: 048
     Dates: end: 202104
  3. PRILEN [RAMIPRIL] [Concomitant]
     Indication: Product used for unknown indication
     Dosage: 2*2.5 MG

REACTIONS (5)
  - Chronic lymphocytic leukaemia [Fatal]
  - Bone marrow failure [Unknown]
  - Cytopenia [Unknown]
  - Sepsis [Unknown]
  - Hepatic enzyme increased [Unknown]

NARRATIVE: CASE EVENT DATE: 20210216
